FAERS Safety Report 5468850-0 (Version None)
Quarter: 2007Q3

REPORT INFORMATION
  Report Type: 
  Country: None (occurrence: None)
  Receive Date: 20070926
  Receipt Date: 20070914
  Transmission Date: 20080115
  Serious: Yes (Other)
  Sender: FDA-Public Use
  Company Number: US-PFIZER INC-2007078424

PATIENT
  Sex: Male
  Weight: 138.3 kg

DRUGS (3)
  1. LYRICA [Suspect]
     Indication: PERONEAL MUSCULAR ATROPHY
  2. ACYCLOVIR [Concomitant]
  3. LIPITOR [Concomitant]

REACTIONS (2)
  - INTRAOCULAR PRESSURE INCREASED [None]
  - OCULAR VASCULAR DISORDER [None]
